FAERS Safety Report 16589248 (Version 1)
Quarter: 2019Q3

REPORT INFORMATION
  Report Type: Spontaneous
  Country: US (occurrence: US)
  Receive Date: 20190604
  Receipt Date: 20190604
  Transmission Date: 20191004
  Serious: No
  Sender: FDA-Public Use
  Company Number: None

PATIENT
  Age: 52 Year
  Sex: Female

DRUGS (4)
  1. ROSVASTATIN [Concomitant]
  2. LEFLUNOMIDE. [Concomitant]
     Active Substance: LEFLUNOMIDE
  3. DUREZOL [Concomitant]
     Active Substance: DIFLUPREDNATE
  4. SIMPONI [Suspect]
     Active Substance: GOLIMUMAB
     Indication: RHEUMATOID ARTHRITIS
     Dosage: DOSE:50MG/0.5ML;   OTHER
     Route: 058
     Dates: start: 20180707, end: 20190417

REACTIONS (1)
  - Rash [None]

NARRATIVE: CASE EVENT DATE: 20190604
